FAERS Safety Report 14993992 (Version 2)
Quarter: 2018Q2

REPORT INFORMATION
  Report Type: Spontaneous
  Country: DK (occurrence: DK)
  Receive Date: 20180611
  Receipt Date: 20180622
  Transmission Date: 20180711
  Serious: Yes (Disabling, Other)
  Sender: FDA-Public Use
  Company Number: DK-AUROBINDO-AUR-APL-2018-029843

PATIENT
  Age: 70 Year
  Sex: Female

DRUGS (6)
  1. BONYL [Concomitant]
     Active Substance: NAPROXEN
     Indication: PAIN
     Dosage: 1000 MILLIGRAM, ONCE A DAY (STYRKE: 500 MG)
     Route: 048
     Dates: start: 20160407
  2. PANODIL [Concomitant]
     Active Substance: ACETAMINOPHEN
     Indication: PAIN
     Dosage: 2660 MILLIGRAM, ONCE A DAY (STYRKE: 665 MG)
     Route: 048
     Dates: start: 20140306
  3. AMLODIPIN ACINO [Concomitant]
     Indication: HYPERTENSION
     Dosage: 5 MILLIGRAM, ONCE A DAY (STYRKE: 5 MG)
     Route: 048
     Dates: start: 20160407
  4. CORODIL COMP [Concomitant]
     Active Substance: ENALAPRIL MALEATE\HYDROCHLOROTHIAZIDE
     Indication: HYPERTENSION
     Dosage: 0.5 DOSAGE FORM, ONCE A DAY (STYRKE: 20+12,5 MG)
     Route: 048
     Dates: start: 20130913
  5. ALENDRONIC ACID AUROBINDO TABLETS [Suspect]
     Active Substance: ALENDRONIC ACID
     Indication: OSTEOPOROSIS
     Dosage: 70 MILLIGRAM, 1 PER WEEK (STYRKE: 70 MG)
     Route: 048
     Dates: start: 2014, end: 20170123
  6. ACLASTA [Suspect]
     Active Substance: ZOLEDRONIC ACID
     Indication: OSTEOPOROSIS
     Dosage: 5 MILLIGRAM, 1 PER YEAR (STYRKE: 5 MG/100 ML.)
     Route: 042
     Dates: start: 20161024, end: 20180104

REACTIONS (2)
  - Osteonecrosis of jaw [Not Recovered/Not Resolved]
  - Jaw fistula [Unknown]

NARRATIVE: CASE EVENT DATE: 201708
